FAERS Safety Report 24020205 (Version 3)
Quarter: 2024Q3

REPORT INFORMATION
  Report Type: Spontaneous
  Country: US (occurrence: US)
  Receive Date: 20240627
  Receipt Date: 20240722
  Transmission Date: 20241016
  Serious: No
  Sender: BLUEPRINT MEDICINES
  Company Number: US-Blueprint Medicines Corporation-3974

PATIENT
  Age: 30 Year
  Sex: Female

DRUGS (7)
  1. AYVAKIT [Suspect]
     Active Substance: AVAPRITINIB
     Indication: Systemic mastocytosis
     Route: 065
     Dates: start: 20240601
  2. AYVAKIT [Suspect]
     Active Substance: AVAPRITINIB
     Route: 065
     Dates: start: 20240601
  3. MAGNESIUM [Concomitant]
     Active Substance: MAGNESIUM
     Indication: Product used for unknown indication
     Route: 065
  4. MAGNESIUM [Concomitant]
     Active Substance: MAGNESIUM
     Route: 065
  5. BOTOX [Concomitant]
     Active Substance: ONABOTULINUMTOXINA
     Indication: Product used for unknown indication
     Route: 065
     Dates: start: 202310
  6. ZYRTEC [Concomitant]
     Active Substance: CETIRIZINE HYDROCHLORIDE
     Indication: Product used for unknown indication
     Route: 065
  7. ZENPEP [Concomitant]
     Active Substance: PANCRELIPASE AMYLASE\PANCRELIPASE LIPASE\PANCRELIPASE PROTEASE
     Indication: Product used for unknown indication
     Route: 065

REACTIONS (25)
  - Epistaxis [Unknown]
  - Pain [Unknown]
  - Joint stiffness [Unknown]
  - Neck pain [Unknown]
  - Back pain [Unknown]
  - Headache [Unknown]
  - Migraine [Recovered/Resolved]
  - Lip swelling [Unknown]
  - Contusion [Unknown]
  - Upper respiratory tract infection [Unknown]
  - Joint dislocation [Unknown]
  - Hypersomnia [Not Recovered/Not Resolved]
  - Memory impairment [Not Recovered/Not Resolved]
  - Disorientation [Not Recovered/Not Resolved]
  - Feeling hot [Unknown]
  - Peripheral swelling [Unknown]
  - Swelling [Unknown]
  - Condition aggravated [Unknown]
  - Nausea [Unknown]
  - Fatigue [Not Recovered/Not Resolved]
  - Brain fog [Unknown]
  - Decreased appetite [Unknown]
  - Unevaluable event [Unknown]
  - Illness [Not Recovered/Not Resolved]
  - Product dose omission issue [Unknown]

NARRATIVE: CASE EVENT DATE: 20240703
